FAERS Safety Report 9066412 (Version 1)
Quarter: 2013Q1

REPORT INFORMATION
  Report Type: Report from Study
  Country: US (occurrence: US)
  Receive Date: 20130131
  Receipt Date: 20130131
  Transmission Date: 20140127
  Serious: No
  Sender: FDA-Public Use
  Company Number: US-ABBOTT-12P-163-1013052-00

PATIENT
  Age: 59 Year
  Sex: Male

DRUGS (17)
  1. HUMIRA [Suspect]
     Indication: CROHN^S DISEASE
  2. ALPRAZOLAM [Concomitant]
     Indication: ANXIETY
     Dosage: EVERY PM
  3. TRAMADOL [Concomitant]
     Indication: PAIN IN EXTREMITY
  4. LUNESTA [Concomitant]
     Indication: INSOMNIA
     Dosage: EVERY PM
  5. CLONAZEPAM [Concomitant]
     Indication: ANXIETY
  6. CLONAZEPAM [Concomitant]
     Indication: POST-TRAUMATIC STRESS DISORDER
  7. HCTZ [Concomitant]
     Indication: BLOOD PRESSURE
     Dosage: IN THE AM
  8. LISINOPRIL [Concomitant]
     Indication: BLOOD PRESSURE
     Dosage: IN THE AM
  9. SULFASALAZINE [Concomitant]
     Indication: ARTHRITIS
  10. ASPIRIN [Concomitant]
     Indication: CARDIAC DISORDER
  11. HYDROCODONE [Concomitant]
     Indication: RESTLESS LEGS SYNDROME
  12. CIALIS [Concomitant]
     Indication: PRODUCT USED FOR UNKNOWN INDICATION
  13. PANTOPRAZOLE [Concomitant]
     Indication: GASTRIC DISORDER
  14. GLUCOSAMINE CHONDROITIN [Concomitant]
     Indication: PRODUCT USED FOR UNKNOWN INDICATION
  15. FISH OIL [Concomitant]
     Indication: PRODUCT USED FOR UNKNOWN INDICATION
  16. VITAMIN B COMPLEX [Concomitant]
     Indication: PRODUCT USED FOR UNKNOWN INDICATION
  17. NEUPRO [Concomitant]
     Indication: RESTLESS LEGS SYNDROME

REACTIONS (3)
  - Hepatic steatosis [Unknown]
  - Sinusitis [Not Recovered/Not Resolved]
  - Hepatic enzyme increased [Not Recovered/Not Resolved]
